FAERS Safety Report 6959615-9 (Version None)
Quarter: 2010Q3

REPORT INFORMATION
  Report Type: 
  Country: None (occurrence: None)
  Receive Date: 20100823
  Receipt Date: 20081208
  Transmission Date: 20110219
  Serious: No
  Sender: FDA-Public Use
  Company Number: 8040175

PATIENT
  Sex: Female
  Weight: 14.9 kg

DRUGS (2)
  1. CERTOLIZUMAB PEGOL (UCB, INC) [Suspect]
     Indication: CROHN'S DISEASE
     Dosage: (SUBCUTANEOUS)
     Route: 058
     Dates: start: 20081118
  2. PENTASA [Concomitant]

REACTIONS (3)
  - INJECTION SITE JOINT SWELLING [None]
  - INJECTION SITE PAIN [None]
  - INJECTION SITE RASH [None]
